FAERS Safety Report 23631407 (Version 1)
Quarter: 2024Q1

REPORT INFORMATION
  Report Type: Spontaneous
  Country: ZA (occurrence: None)
  Receive Date: 20240314
  Receipt Date: 20240314
  Transmission Date: 20240410
  Serious: Yes (Hospitalization)
  Sender: FDA-Public Use
  Company Number: 2024A057572

PATIENT
  Age: 62 Year
  Sex: Female

DRUGS (6)
  1. BUDESONIDE\FORMOTEROL FUMARATE DIHYDRATE [Suspect]
     Active Substance: BUDESONIDE\FORMOTEROL FUMARATE DIHYDRATE
     Indication: Asthma
     Dosage: 60 UG UNKNOWN UNKNOWN
     Route: 055
  2. ZOPICLONE [Concomitant]
     Active Substance: ZOPICLONE
     Indication: Sleep study
     Route: 048
  3. ESTRADIOL HEMIHYDRATE [Concomitant]
     Active Substance: ESTRADIOL HEMIHYDRATE
     Indication: Reproductive hormone
     Dosage: 1.0MG UNKNOWN
     Route: 048
  4. AMITRIPTYLINE HCL KIARA [Concomitant]
     Indication: Depression
     Dosage: 25.0MG UNKNOWN
     Route: 048
  5. LAMOTRIGINE [Concomitant]
     Active Substance: LAMOTRIGINE
     Indication: Epilepsy
     Dosage: 100.0MG UNKNOWN
     Route: 048
  6. CITALOPRAM HYDROBROMIDE [Concomitant]
     Active Substance: CITALOPRAM HYDROBROMIDE
     Indication: Depression
     Dosage: 20.0MG UNKNOWN
     Route: 048

REACTIONS (6)
  - Epilepsy [Unknown]
  - Arrhythmia [Unknown]
  - Cardiac disorder [Unknown]
  - Dysphagia [Unknown]
  - Oesophageal spasm [Unknown]
  - Vasodilatation [Unknown]
